FAERS Safety Report 9954711 (Version 2)
Quarter: 2014Q2

REPORT INFORMATION
  Report Type: Spontaneous
  Country: AU (occurrence: AU)
  Receive Date: 20140304
  Receipt Date: 20140430
  Transmission Date: 20141212
  Serious: Yes (Hospitalization)
  Sender: FDA-Public Use
  Company Number: AU-ACTELION-A-CH2014-95508

PATIENT
  Age: 76 Year
  Sex: Female
  Weight: 47.7 kg

DRUGS (10)
  1. TRACLEER [Suspect]
     Indication: PULMONARY ARTERIAL HYPERTENSION
     Dosage: 125 MG, BID
     Route: 048
     Dates: start: 20130501
  2. TRACLEER [Suspect]
     Dosage: 62.5 MG, BID
     Route: 048
     Dates: start: 20130416, end: 20130430
  3. SILDENAFIL [Concomitant]
  4. BUMETANIDE [Concomitant]
     Dosage: 2 MG, BID
  5. PANTOPRAZOLE [Concomitant]
  6. DIGOXIN [Concomitant]
  7. BISOPROLOL [Concomitant]
  8. ATORVASTATIN [Concomitant]
  9. THYROXINE [Concomitant]
  10. WARFARIN [Concomitant]

REACTIONS (6)
  - Fluid overload [Recovered/Resolved]
  - Orthostatic hypotension [Recovered/Resolved]
  - Fall [Recovered/Resolved]
  - Femoral neck fracture [Recovered/Resolved]
  - Hip arthroplasty [Recovered/Resolved]
  - Syncope [Recovered/Resolved]
